FAERS Safety Report 18553081 (Version 1)
Quarter: 2020Q4

REPORT INFORMATION
  Report Type: Spontaneous
  Country: DE (occurrence: DE)
  Receive Date: 20201127
  Receipt Date: 20201127
  Transmission Date: 20210114
  Serious: Yes (Other)
  Sender: FDA-Public Use
  Company Number: DE-AUROBINDO-AUR-APL-2020-058232

PATIENT

DRUGS (8)
  1. COPANLISIB. [Suspect]
     Active Substance: COPANLISIB
     Dosage: 45 MILLIGRAM (REDUCED TO 45 MG)
     Route: 042
     Dates: start: 20200917, end: 20200917
  2. TRUXIMA [Suspect]
     Active Substance: RITUXIMAB-ABBS
     Indication: MARGINAL ZONE LYMPHOMA
     Dosage: 375 MILLIGRAM/SQ. METER (375 MG/SQUARE METER ON DAY 1 OF EVERY CYCLE)
     Route: 042
     Dates: start: 20200820
  3. ACICLOVIR [Suspect]
     Active Substance: ACYCLOVIR
     Indication: PRODUCT USED FOR UNKNOWN INDICATION
     Dosage: UNK
     Route: 065
  4. COPANLISIB. [Suspect]
     Active Substance: COPANLISIB
     Dosage: 45 MILLIGRAM
     Route: 065
     Dates: start: 20201023
  5. COPANLISIB. [Suspect]
     Active Substance: COPANLISIB
     Indication: PRODUCT USED FOR UNKNOWN INDICATION
     Dosage: LAST DOSE PRIOR EVENT ONSET
     Route: 065
     Dates: start: 20201001, end: 20201001
  6. TRUXIMA [Suspect]
     Active Substance: RITUXIMAB-ABBS
     Dosage: 577.5 MG (375MG/SQUARE METER), LAST DOSE PRIOR EVENT ONSET, GIVEN EVERY 28 DAYS
     Route: 042
     Dates: start: 20200917, end: 20200917
  7. TRUXIMA [Suspect]
     Active Substance: RITUXIMAB-ABBS
     Indication: PRODUCT USED FOR UNKNOWN INDICATION
     Dosage: 375 MILLIGRAM/SQ. METER
     Route: 065
     Dates: start: 20201023
  8. COPANLISIB. [Suspect]
     Active Substance: COPANLISIB
     Indication: MARGINAL ZONE LYMPHOMA
     Dosage: 60 MILLIGRAM (60 MG ON DAYS 1, 8, AND 15 OF EVERY CYCLE)
     Route: 042
     Dates: start: 20200820

REACTIONS (2)
  - Diarrhoea [Recovered/Resolved]
  - Off label use [Unknown]

NARRATIVE: CASE EVENT DATE: 20201008
